FAERS Safety Report 15328706 (Version 1)
Quarter: 2018Q3

REPORT INFORMATION
  Report Type: Spontaneous
  Country: CA (occurrence: CA)
  Receive Date: 20180829
  Receipt Date: 20180829
  Transmission Date: 20181010
  Serious: Yes (Other)
  Sender: FDA-Public Use
  Company Number: CA-REGENERON PHARMACEUTICALS, INC.-2018-33373

PATIENT

DRUGS (2)
  1. EYLEA [Suspect]
     Active Substance: AFLIBERCEPT
     Dosage: UNK,OS LAST PRIOR TO EVENT
     Route: 031
     Dates: start: 20180725, end: 20180725
  2. EYLEA [Suspect]
     Active Substance: AFLIBERCEPT
     Indication: NEOVASCULAR AGE-RELATED MACULAR DEGENERATION
     Dosage: UNK, OS
     Route: 031

REACTIONS (2)
  - Injection site inflammation [Recovered/Resolved]
  - Eye infection [Unknown]

NARRATIVE: CASE EVENT DATE: 2018
